FAERS Safety Report 8058772-3 (Version None)
Quarter: 2012Q1

REPORT INFORMATION
  Report Type: 
  Country: None (occurrence: None)
  Receive Date: 20120113
  Receipt Date: 20120105
  Transmission Date: 20120608
  Serious: Yes (Other)
  Sender: FDA-Public Use
  Company Number: AUR-APU-2012-00202

PATIENT
  Sex: Female

DRUGS (7)
  1. ALENDRONIC ACID(ALENDRONIC ACID) [Suspect]
     Indication: OSTEOPENIA
     Dosage: (1 IN 1 WK), ORAL
     Route: 048
  2. ALENDRONIC ACID(ALENDRONIC ACID) [Suspect]
     Indication: OSTEOPOROSIS
     Dosage: (1 IN 1 WK), ORAL
     Route: 048
  3. TRAMADOL HCL [Concomitant]
  4. LISINOPRIL [Concomitant]
  5. SIMVASTATIN [Concomitant]
  6. CALCIUM+VITAMIN D (CALCIUM D3 /01483701/) [Concomitant]
  7. TRICOR(ALENDOSINE) [Concomitant]

REACTIONS (2)
  - OSTEOPOROSIS [None]
  - DRUG INEFFECTIVE [None]
